FAERS Safety Report 5877180-4 (Version None)
Quarter: 2008Q3

REPORT INFORMATION
  Report Type: 
  Country: None (occurrence: None)
  Receive Date: 20080908
  Receipt Date: 20080908
  Transmission Date: 20090109
  Serious: Yes (Death)
  Sender: FDA-Public Use
  Company Number: None

PATIENT
  Age: 48 Year
  Sex: Female
  Weight: 63.5036 kg

DRUGS (1)
  1. EMBREL 50 MG AMGEN AND WYETH [Suspect]
     Dosage: 50 MG WEEKLY
     Dates: start: 20070201, end: 20080201

REACTIONS (15)
  - ALOPECIA [None]
  - CARDIAC ARREST [None]
  - CELLULITIS [None]
  - DEHYDRATION [None]
  - GENERAL PHYSICAL HEALTH DETERIORATION [None]
  - HERPES ZOSTER [None]
  - HYPOXIA [None]
  - INFLUENZA LIKE ILLNESS [None]
  - NEPHROLITHIASIS [None]
  - RESPIRATORY FAILURE [None]
  - SALMONELLOSIS [None]
  - SEPSIS [None]
  - SKIN DISORDER [None]
  - STOMATITIS [None]
  - URINARY TRACT INFECTION [None]
